FAERS Safety Report 13058696 (Version 1)
Quarter: 2016Q4

REPORT INFORMATION
  Report Type: Spontaneous
  Country: JP (occurrence: JP)
  Receive Date: 20161223
  Receipt Date: 20161223
  Transmission Date: 20170207
  Serious: Yes (Other)
  Sender: FDA-Public Use
  Company Number: PHHY2015JP131237

PATIENT

DRUGS (1)
  1. REVOLADE [Suspect]
     Active Substance: ELTROMBOPAG
     Indication: IMMUNE THROMBOCYTOPENIC PURPURA
     Dosage: UNK
     Route: 048

REACTIONS (8)
  - Aspiration bone marrow abnormal [Unknown]
  - Blast cell count increased [Unknown]
  - Biopsy bone marrow abnormal [Unknown]
  - Nucleated red cells [Unknown]
  - Reticulin increased [Recovering/Resolving]
  - Haemoglobin decreased [Unknown]
  - Platelet count decreased [Unknown]
  - Hepatomegaly [Unknown]
